FAERS Safety Report 7538874-8 (Version None)
Quarter: 2011Q2

REPORT INFORMATION
  Report Type: 
  Country: None (occurrence: None)
  Receive Date: 20110524
  Receipt Date: 20110406
  Transmission Date: 20111010
  Serious: No
  Sender: FDA-Public Use
  Company Number: 030639

PATIENT
  Age: 52 Year
  Sex: Female

DRUGS (1)
  1. CIMZIA [Suspect]
     Dosage: (400 MG 1X/MONTH )

REACTIONS (8)
  - ABDOMINAL DISCOMFORT [None]
  - GAIT DISTURBANCE [None]
  - ACNE [None]
  - FATIGUE [None]
  - PAIN [None]
  - MEMORY IMPAIRMENT [None]
  - WEIGHT DECREASED [None]
  - SKIN DISCOLOURATION [None]
